FAERS Safety Report 13902607 (Version 1)
Quarter: 2017Q3

REPORT INFORMATION
  Report Type: Spontaneous
  Country: US (occurrence: US)
  Receive Date: 20170824
  Receipt Date: 20170824
  Transmission Date: 20171127
  Serious: Yes (Death)
  Sender: FDA-Public Use
  Company Number: US-ROCHE-662807

PATIENT
  Age: 42 Year
  Sex: Female
  Weight: 68.03 kg

DRUGS (4)
  1. CARBOPLATIN. [Concomitant]
     Active Substance: CARBOPLATIN
     Indication: THERAPEUTIC PROCEDURE
     Dosage: UNK
     Route: 065
  2. TRASTUZUMAB. [Suspect]
     Active Substance: TRASTUZUMAB
     Dosage: 2 MG/KG, 1/WEEK
     Route: 042
  3. TRASTUZUMAB. [Suspect]
     Active Substance: TRASTUZUMAB
     Indication: THERAPEUTIC PROCEDURE
     Dosage: 4 MG/KG, 1/WEEK
     Route: 042
  4. TAXOTERE [Concomitant]
     Active Substance: DOCETAXEL
     Indication: THERAPEUTIC PROCEDURE
     Dosage: UNK
     Route: 065

REACTIONS (6)
  - Neutropenia [Fatal]
  - Fatigue [Fatal]
  - Constipation [Fatal]
  - Diarrhoea [Fatal]
  - Pyrexia [Fatal]
  - Colitis [Fatal]

NARRATIVE: CASE EVENT DATE: 20091008
